FAERS Safety Report 19723002 (Version 4)
Quarter: 2022Q1

REPORT INFORMATION
  Report Type: Spontaneous
  Country: FR (occurrence: FR)
  Receive Date: 20210820
  Receipt Date: 20220225
  Transmission Date: 20220423
  Serious: Yes (Hospitalization, Disabling, Other)
  Sender: FDA-Public Use
  Company Number: FR-THERAMEX-2021000843

PATIENT
  Age: 50 Year
  Sex: Female
  Weight: 64 kg

DRUGS (81)
  1. VENLAFAXINE [Suspect]
     Active Substance: VENLAFAXINE HYDROCHLORIDE
     Indication: Headache
     Route: 065
  2. ALBUTEROL [Suspect]
     Active Substance: ALBUTEROL
     Indication: Asthma
     Route: 065
  3. CHLORPROPAMIDE [Suspect]
     Active Substance: CHLORPROPAMIDE
     Indication: Haemorrhage
     Route: 065
     Dates: start: 1999, end: 2001
  4. CHLORPROPAMIDE [Suspect]
     Active Substance: CHLORPROPAMIDE
     Indication: Migraine
  5. CHLORMADINONE ACETATE [Suspect]
     Active Substance: CHLORMADINONE ACETATE
     Indication: Migraine
     Dosage: EVERY 1 DAY
     Route: 048
     Dates: start: 20011105, end: 200211
  6. CHLORMADINONE ACETATE [Suspect]
     Active Substance: CHLORMADINONE ACETATE
     Indication: Ovarian cyst
     Route: 065
     Dates: start: 2017, end: 2019
  7. CHLORMADINONE ACETATE [Suspect]
     Active Substance: CHLORMADINONE ACETATE
     Route: 065
     Dates: start: 2001, end: 2004
  8. CHLORMADINONE ACETATE [Suspect]
     Active Substance: CHLORMADINONE ACETATE
     Route: 065
     Dates: start: 20160226
  9. BROMAZEPAM [Suspect]
     Active Substance: BROMAZEPAM
     Indication: Product used for unknown indication
     Route: 065
  10. NOMEGESTROL ACETATE [Suspect]
     Active Substance: NOMEGESTROL ACETATE
     Indication: Haemorrhage
     Route: 065
     Dates: start: 20021113, end: 201103
  11. NOMEGESTROL ACETATE [Suspect]
     Active Substance: NOMEGESTROL ACETATE
     Indication: Migraine
     Route: 065
     Dates: start: 20110316
  12. NOMEGESTROL ACETATE [Suspect]
     Active Substance: NOMEGESTROL ACETATE
     Indication: Intermenstrual bleeding
     Dosage: LUTENYL CONTINUOUSLY
     Route: 065
     Dates: start: 20061027
  13. NOMEGESTROL ACETATE [Suspect]
     Active Substance: NOMEGESTROL ACETATE
     Indication: Oral contraception
     Route: 065
     Dates: start: 20031112
  14. NOMEGESTROL ACETATE [Suspect]
     Active Substance: NOMEGESTROL ACETATE
     Indication: Ovarian cyst
     Route: 065
     Dates: start: 201103
  15. NOMEGESTROL ACETATE [Suspect]
     Active Substance: NOMEGESTROL ACETATE
     Indication: Contraception
     Route: 065
     Dates: start: 20040330
  16. NOMEGESTROL ACETATE [Suspect]
     Active Substance: NOMEGESTROL ACETATE
     Indication: Haemorrhage
     Route: 065
     Dates: start: 20030430
  17. NOMEGESTROL ACETATE [Suspect]
     Active Substance: NOMEGESTROL ACETATE
     Dosage: RENEWAL LUTENYL
     Route: 065
     Dates: start: 20080429
  18. NOMEGESTROL ACETATE [Suspect]
     Active Substance: NOMEGESTROL ACETATE
     Dosage: RENEWAL LUTENYL, LUTENYL CONTINUOUSLY
     Route: 065
     Dates: start: 20050420
  19. NOMEGESTROL ACETATE [Suspect]
     Active Substance: NOMEGESTROL ACETATE
     Route: 065
     Dates: start: 2002, end: 2011
  20. NOMEGESTROL ACETATE [Suspect]
     Active Substance: NOMEGESTROL ACETATE
     Dosage: LUTENYL CONTINUOUSLY
     Route: 065
     Dates: start: 20091116
  21. NOMEGESTROL ACETATE [Suspect]
     Active Substance: NOMEGESTROL ACETATE
     Dosage: LUTENYL CONTINUOUSLY
     Route: 065
     Dates: start: 20071010
  22. NOMEGESTROL ACETATE [Suspect]
     Active Substance: NOMEGESTROL ACETATE
     Dosage: LUTENYL CONTINUOUSLY
     Route: 065
     Dates: start: 20051025
  23. NOMEGESTROL ACETATE [Suspect]
     Active Substance: NOMEGESTROL ACETATE
     Dosage: LUTENYL CONTINUOUSLY
     Route: 065
     Dates: start: 20100206
  24. NOMEGESTROL ACETATE [Suspect]
     Active Substance: NOMEGESTROL ACETATE
     Dosage: LUTENYL CONTINUOUSLY
     Route: 065
     Dates: start: 20080408
  25. NOMEGESTROL ACETATE [Suspect]
     Active Substance: NOMEGESTROL ACETATE
     Dosage: LUTENYL CONTINUOUSLY
     Route: 065
     Dates: start: 20040923
  26. NOMEGESTROL ACETATE [Suspect]
     Active Substance: NOMEGESTROL ACETATE
     Dosage: LUTENYL CONTINUOUSLY
     Route: 065
     Dates: start: 20070503
  27. NOMEGESTROL ACETATE [Suspect]
     Active Substance: NOMEGESTROL ACETATE
     Dosage: EVERY 1 DAY
     Route: 048
     Dates: start: 20021113, end: 201103
  28. NOMEGESTROL ACETATE [Suspect]
     Active Substance: NOMEGESTROL ACETATE
     Route: 065
     Dates: start: 20170525, end: 20170614
  29. NOMEGESTROL ACETATE [Suspect]
     Active Substance: NOMEGESTROL ACETATE
     Route: 065
     Dates: start: 20190226
  30. NOMEGESTROL ACETATE [Suspect]
     Active Substance: NOMEGESTROL ACETATE
     Dates: start: 20040923
  31. SINGULAIR [Suspect]
     Active Substance: MONTELUKAST SODIUM
     Indication: Product used for unknown indication
     Route: 065
     Dates: start: 20110516
  32. ESCITALOPRAM OXALATE [Suspect]
     Active Substance: ESCITALOPRAM OXALATE
     Indication: Product used for unknown indication
     Route: 065
  33. ALMOTRIPTAN MALATE [Suspect]
     Active Substance: ALMOTRIPTAN MALATE
     Indication: Headache
     Route: 065
  34. VENTOLIN [Suspect]
     Active Substance: ALBUTEROL SULFATE
     Indication: Product used for unknown indication
     Route: 065
  35. KEPPRA [Suspect]
     Active Substance: LEVETIRACETAM
     Indication: Product used for unknown indication
     Route: 065
  36. MEDROL [Suspect]
     Active Substance: METHYLPREDNISOLONE
     Indication: Product used for unknown indication
     Route: 048
     Dates: start: 201602
  37. INDOMETHACIN [Suspect]
     Active Substance: INDOMETHACIN
     Indication: Headache
     Route: 065
  38. CYPROTERONE ACETATE [Suspect]
     Active Substance: CYPROTERONE ACETATE
     Indication: Hirsutism
     Dosage: 10 MG COMPRESSED
     Route: 065
     Dates: start: 20110506, end: 201507
  39. CYPROTERONE ACETATE [Suspect]
     Active Substance: CYPROTERONE ACETATE
     Indication: Oral contraception
     Route: 065
     Dates: start: 20111107
  40. CYPROTERONE ACETATE [Suspect]
     Active Substance: CYPROTERONE ACETATE
     Dosage: EVERY 1 DAY
     Route: 048
     Dates: start: 201105, end: 201506
  41. CYPROTERONE ACETATE [Suspect]
     Active Substance: CYPROTERONE ACETATE
     Route: 065
     Dates: start: 20150617
  42. CYPROTERONE ACETATE [Suspect]
     Active Substance: CYPROTERONE ACETATE
     Route: 065
     Dates: start: 20120406
  43. CYPROTERONE ACETATE [Suspect]
     Active Substance: CYPROTERONE ACETATE
     Route: 065
     Dates: start: 20121113
  44. CYPROTERONE ACETATE [Suspect]
     Active Substance: CYPROTERONE ACETATE
     Route: 065
     Dates: start: 20130514
  45. CYPROTERONE ACETATE [Suspect]
     Active Substance: CYPROTERONE ACETATE
     Route: 065
     Dates: start: 20150617
  46. CYPROTERONE ACETATE [Suspect]
     Active Substance: CYPROTERONE ACETATE
     Route: 065
     Dates: start: 20131127
  47. CYPROTERONE ACETATE [Suspect]
     Active Substance: CYPROTERONE ACETATE
     Route: 065
     Dates: start: 20170323
  48. CYPROTERONE ACETATE [Suspect]
     Active Substance: CYPROTERONE ACETATE
     Route: 065
     Dates: start: 20150115
  49. CYPROTERONE ACETATE [Suspect]
     Active Substance: CYPROTERONE ACETATE
     Route: 065
     Dates: start: 201505
  50. AMITRIPTYLINE HYDROCHLORIDE [Suspect]
     Active Substance: AMITRIPTYLINE HYDROCHLORIDE
     Indication: Headache
     Route: 065
  51. OXETORONE [Suspect]
     Active Substance: OXETORONE
     Indication: Headache
     Route: 065
  52. ASPIRIN LYSINE\METOCLOPRAMIDE HYDROCHLORIDE [Suspect]
     Active Substance: ASPIRIN LYSINE\METOCLOPRAMIDE HYDROCHLORIDE
     Indication: Headache
     Route: 065
  53. DIANE (CYPROTERONE ACETATE\ETHINYL ESTRADIOL) [Suspect]
     Active Substance: CYPROTERONE ACETATE\ETHINYL ESTRADIOL
     Indication: Haemorrhage
     Route: 065
     Dates: start: 20001128
  54. DIANE (CYPROTERONE ACETATE\ETHINYL ESTRADIOL) [Suspect]
     Active Substance: CYPROTERONE ACETATE\ETHINYL ESTRADIOL
     Route: 065
     Dates: start: 20011105
  55. DIANE (CYPROTERONE ACETATE\ETHINYL ESTRADIOL) [Suspect]
     Active Substance: CYPROTERONE ACETATE\ETHINYL ESTRADIOL
     Dosage: NOVEMBER 2001 TO NOVEMBER 2002: NEW PRESCRIPTION DIANE 35 FOR 9 MONTHS
     Route: 065
     Dates: start: 200111, end: 200111
  56. PROPRANOLOL HYDROCHLORIDE [Suspect]
     Active Substance: PROPRANOLOL HYDROCHLORIDE
     Indication: Headache
     Route: 065
     Dates: start: 20001128
  57. PROPRANOLOL HYDROCHLORIDE [Suspect]
     Active Substance: PROPRANOLOL HYDROCHLORIDE
     Route: 065
     Dates: start: 199703
  58. DIANE (CYPROTERONE ACETATE\ETHINYL ESTRADIOL) [Concomitant]
     Active Substance: CYPROTERONE ACETATE\ETHINYL ESTRADIOL
     Indication: Migraine
     Route: 065
     Dates: start: 1999, end: 2001
  59. DIANE (CYPROTERONE ACETATE\ETHINYL ESTRADIOL) [Concomitant]
     Active Substance: CYPROTERONE ACETATE\ETHINYL ESTRADIOL
     Indication: Haemorrhage
     Dates: start: 200006
  60. ESTRADIOL [Concomitant]
     Active Substance: ESTRADIOL
     Indication: Hair disorder
     Dosage: GEL 2 P
     Route: 065
     Dates: start: 20150617
  61. ESTRADIOL [Concomitant]
     Active Substance: ESTRADIOL
     Indication: Dysmenorrhoea
     Route: 065
     Dates: start: 20130514
  62. ESTRADIOL [Concomitant]
     Active Substance: ESTRADIOL
     Dosage: 1 GEL PRESSURE
     Route: 065
     Dates: start: 20131127
  63. SIBELIUM [Concomitant]
     Indication: Product used for unknown indication
  64. SINGULAIR [Concomitant]
     Active Substance: MONTELUKAST SODIUM
     Indication: Product used for unknown indication
     Dates: start: 20110516
  65. PAROXETINE HYDROCHLORIDE [Concomitant]
     Active Substance: PAROXETINE HYDROCHLORIDE
     Indication: Product used for unknown indication
     Dates: start: 20051025
  66. OXETORONE [Concomitant]
     Active Substance: OXETORONE
     Indication: Headache
  67. TOPIRAMATE [Concomitant]
     Active Substance: TOPIRAMATE
     Indication: Headache
     Dates: start: 20100608
  68. TOPIRAMATE [Concomitant]
     Active Substance: TOPIRAMATE
     Dates: start: 20110516
  69. PROMESTRIENE [Concomitant]
     Active Substance: PROMESTRIENE
     Indication: Product used for unknown indication
     Dates: start: 20090429
  70. PROMESTRIENE [Concomitant]
     Active Substance: PROMESTRIENE
     Route: 067
     Dates: start: 20091116
  71. PROMESTRIENE [Concomitant]
     Active Substance: PROMESTRIENE
     Route: 067
     Dates: start: 20090429
  72. PROMESTRIENE [Concomitant]
     Active Substance: PROMESTRIENE
     Route: 067
     Dates: start: 20091116
  73. DIHYDROERGOTAMINE MESYLATE [Concomitant]
     Active Substance: DIHYDROERGOTAMINE MESYLATE
     Indication: Product used for unknown indication
     Route: 065
     Dates: start: 20050420
  74. PRAZEPAM [Concomitant]
     Active Substance: PRAZEPAM
     Indication: Product used for unknown indication
     Dosage: HALF TABLET *3
     Dates: start: 20090429
  75. PRAZEPAM [Concomitant]
     Active Substance: PRAZEPAM
     Dates: start: 20051025
  76. PRAZEPAM [Concomitant]
     Active Substance: PRAZEPAM
     Dosage: ? TABLET
     Dates: start: 20060502
  77. PULMICORT TURBUHALER [Concomitant]
     Active Substance: BUDESONIDE
     Indication: Product used for unknown indication
     Dates: start: 20110516
  78. KETOPROFEN [Concomitant]
     Active Substance: KETOPROFEN
     Indication: Product used for unknown indication
     Dosage: 2 CAPSULES PER DAY
     Route: 065
     Dates: start: 20050420
  79. TIANEPTINE [Concomitant]
     Active Substance: TIANEPTINE
     Indication: Headache
     Dates: start: 20100608
  80. TIANEPTINE [Concomitant]
     Active Substance: TIANEPTINE
     Dosage: 1 TABLET PER DAY
     Dates: start: 20061027
  81. DOLIPRANE [Concomitant]
     Active Substance: ACETAMINOPHEN
     Indication: Product used for unknown indication

REACTIONS (89)
  - Meningioma [Not Recovered/Not Resolved]
  - Meningioma [Not Recovered/Not Resolved]
  - Headache [Not Recovered/Not Resolved]
  - Eye pain [Not Recovered/Not Resolved]
  - Epilepsy [Not Recovered/Not Resolved]
  - Discomfort [Not Recovered/Not Resolved]
  - Eye injury [Not Recovered/Not Resolved]
  - Disability [Unknown]
  - Cluster headache [Not Recovered/Not Resolved]
  - Headache [Not Recovered/Not Resolved]
  - Migraine without aura [Not Recovered/Not Resolved]
  - Overdose [Unknown]
  - Malaise [Not Recovered/Not Resolved]
  - Migraine with aura [Not Recovered/Not Resolved]
  - Exophthalmos [Not Recovered/Not Resolved]
  - Asthenopia [Not Recovered/Not Resolved]
  - Hypocalcaemia [Not Recovered/Not Resolved]
  - Neck pain [Not Recovered/Not Resolved]
  - Nausea [Not Recovered/Not Resolved]
  - Hypertrichosis [Unknown]
  - Clumsiness [Not Recovered/Not Resolved]
  - Diplopia [Not Recovered/Not Resolved]
  - Blindness [Not Recovered/Not Resolved]
  - Hypoaesthesia eye [Not Recovered/Not Resolved]
  - Heterophoria [Not Recovered/Not Resolved]
  - Pupils unequal [Not Recovered/Not Resolved]
  - Eyelid ptosis [Not Recovered/Not Resolved]
  - Mydriasis [Not Recovered/Not Resolved]
  - Dizziness [Not Recovered/Not Resolved]
  - Asthenia [Not Recovered/Not Resolved]
  - Nervous system disorder [Not Recovered/Not Resolved]
  - Back pain [Not Recovered/Not Resolved]
  - Condition aggravated [Unknown]
  - Somnolence [Not Recovered/Not Resolved]
  - Photophobia [Recovered/Resolved]
  - Coordination abnormal [Not Recovered/Not Resolved]
  - Gait disturbance [Not Recovered/Not Resolved]
  - Retrograde amnesia [Not Recovered/Not Resolved]
  - Apathy [Not Recovered/Not Resolved]
  - Tenderness [Not Recovered/Not Resolved]
  - Occipital neuralgia [Not Recovered/Not Resolved]
  - Hot flush [Not Recovered/Not Resolved]
  - Fall [Not Recovered/Not Resolved]
  - Balance disorder [Not Recovered/Not Resolved]
  - Tremor [Not Recovered/Not Resolved]
  - Impaired work ability [Recovered/Resolved]
  - General physical condition abnormal [Not Recovered/Not Resolved]
  - Cognitive disorder [Not Recovered/Not Resolved]
  - Communication disorder [Not Recovered/Not Resolved]
  - Intermenstrual bleeding [Recovered/Resolved]
  - Eye movement disorder [Not Recovered/Not Resolved]
  - Sleep disorder [Not Recovered/Not Resolved]
  - Amnesia [Not Recovered/Not Resolved]
  - Visual impairment [Unknown]
  - Headache [Not Recovered/Not Resolved]
  - Pain [Unknown]
  - Diplopia [Unknown]
  - Ligament sprain [Unknown]
  - Paraesthesia [Not Recovered/Not Resolved]
  - Visual impairment [Unknown]
  - Asthenia [Unknown]
  - Impaired quality of life [Unknown]
  - Dizziness [Not Recovered/Not Resolved]
  - Amnesia [Not Recovered/Not Resolved]
  - Depression [Not Recovered/Not Resolved]
  - Vertigo [Not Recovered/Not Resolved]
  - Upper limb fracture [Unknown]
  - Night sweats [Unknown]
  - Hyperhidrosis [Unknown]
  - Phonophobia [Unknown]
  - Fatigue [Not Recovered/Not Resolved]
  - Visual impairment [Not Recovered/Not Resolved]
  - Limb discomfort [Unknown]
  - General physical health deterioration [Unknown]
  - Amenorrhoea [Unknown]
  - Headache [Not Recovered/Not Resolved]
  - Headache [Unknown]
  - Hypertrichosis [Unknown]
  - Condition aggravated [Recovered/Resolved]
  - Diplopia [Unknown]
  - Ligament sprain [Unknown]
  - Movement disorder [Unknown]
  - Ill-defined disorder [Unknown]
  - Muscle twitching [Unknown]
  - Overdose [Unknown]
  - Menometrorrhagia [Unknown]
  - Tachycardia [Unknown]
  - Crying [Unknown]
  - Weight increased [Unknown]

NARRATIVE: CASE EVENT DATE: 20021101
